FAERS Safety Report 5650480-9 (Version None)
Quarter: 2008Q1

REPORT INFORMATION
  Report Type: 
  Country: None (occurrence: None)
  Receive Date: 20080305
  Receipt Date: 20080225
  Transmission Date: 20080703
  Serious: Yes (Other)
  Sender: FDA-Public Use
  Company Number: US-JNJFOC-20080206399

PATIENT
  Sex: Male
  Weight: 99.16 kg

DRUGS (10)
  1. REMICADE [Suspect]
     Indication: RHEUMATOID ARTHRITIS
     Route: 042
  2. TOPROL [Concomitant]
  3. NORVASC [Concomitant]
  4. LIPITOR [Concomitant]
  5. ZOLOFT [Concomitant]
  6. PREDNISONE TAB [Concomitant]
  7. FISH OIL [Concomitant]
  8. ASPIRIN [Concomitant]
  9. AMBIEN [Concomitant]
  10. PROTONIX [Concomitant]
     Dosage: AS NEEDED

REACTIONS (1)
  - MALIGNANT MELANOMA [None]
